FAERS Safety Report 15091272 (Version 1)
Quarter: 2018Q2

REPORT INFORMATION
  Report Type: Report from Study
  Country: IT (occurrence: IT)
  Receive Date: 20180629
  Receipt Date: 20180629
  Transmission Date: 20180711
  Serious: Yes (Other)
  Sender: FDA-Public Use
  Company Number: IT-TEVA-2018-IT-917326

PATIENT
  Age: 17 Year
  Sex: Female

DRUGS (2)
  1. ALPRAZOLAM. [Suspect]
     Active Substance: ALPRAZOLAM
     Indication: DRUG ABUSE
     Route: 048
     Dates: start: 20180207, end: 20180207
  2. QUETIAPINE. [Concomitant]
     Active Substance: QUETIAPINE
     Dosage: 400 MILLIGRAM DAILY;
     Route: 048

REACTIONS (2)
  - Poisoning [Unknown]
  - Drug abuse [Unknown]

NARRATIVE: CASE EVENT DATE: 20180207
